FAERS Safety Report 6016560-3 (Version None)
Quarter: 2008Q4

REPORT INFORMATION
  Report Type: 
  Country: None (occurrence: None)
  Receive Date: 20081222
  Receipt Date: 20081210
  Transmission Date: 20090506
  Serious: No
  Sender: FDA-Public Use
  Company Number: US-GENENTECH-269807

PATIENT

DRUGS (3)
  1. BEVACIZUMAB [Suspect]
     Indication: ADENOCARCINOMA PANCREAS
     Dosage: 10 MG/KG, DAYS 1+15
     Dates: start: 20060420
  2. GEMCITABINE HCL [Suspect]
     Indication: ADENOCARCINOMA PANCREAS
     Dosage: 1000 MG/M2, DAYS 1+15
     Dates: start: 20060420
  3. CISPLATIN [Suspect]
     Indication: ADENOCARCINOMA PANCREAS
     Dosage: 20 MG/M2, DAYS 1+15

REACTIONS (2)
  - INJURY [None]
  - SKIN ULCER [None]
